FAERS Safety Report 26197673 (Version 1)
Quarter: 2025Q4

REPORT INFORMATION
  Report Type: Spontaneous
  Country: US (occurrence: US)
  Receive Date: 20251224
  Receipt Date: 20251224
  Transmission Date: 20260117
  Serious: Yes (Other)
  Sender: SANOFI AVENTIS
  Company Number: US-SA-2025SA381214

PATIENT
  Sex: Female

DRUGS (9)
  1. DUPIXENT [Suspect]
     Active Substance: DUPILUMAB
     Indication: Dermatitis atopic
     Dosage: 300 MG, QOW
     Route: 058
  2. AMLODIPINE [Concomitant]
     Active Substance: AMLODIPINE BESYLATE
  3. ASPIRIN [Concomitant]
     Active Substance: ASPIRIN
  4. BACLOFEN [Concomitant]
     Active Substance: BACLOFEN
  5. Desvenlafaxin extended release [Concomitant]
  6. FAMOTIDINE AKRI [Concomitant]
  7. IRBESARTAN + HIDROCLOROTIAZIDA ARUDEL [Concomitant]
  8. METOPROLOL [Concomitant]
     Active Substance: METOPROLOL
  9. RYBELSUS [Concomitant]
     Active Substance: SEMAGLUTIDE

REACTIONS (3)
  - Spinal operation [Unknown]
  - Back pain [Unknown]
  - Insomnia [Unknown]
